FAERS Safety Report 10263334 (Version 1)
Quarter: 2014Q2

REPORT INFORMATION
  Report Type: Spontaneous
  Country: US (occurrence: US)
  Receive Date: 20140626
  Receipt Date: 20140626
  Transmission Date: 20141212
  Serious: Yes (Hospitalization)
  Sender: FDA-Public Use
  Company Number: US-LUNDBECK-DKLU1101177

PATIENT
  Age: 19 Year
  Sex: Female
  Weight: 59 kg

DRUGS (2)
  1. SABRIL     (TABLET) [Suspect]
     Indication: TEMPORAL LOBE EPILEPSY
     Route: 048
     Dates: start: 20130604
  2. SABRIL     (TABLET) [Suspect]
     Indication: EPILEPSY

REACTIONS (1)
  - Convulsion [Unknown]
